FAERS Safety Report 10569181 (Version 3)
Quarter: 2015Q1

REPORT INFORMATION
  Report Type: Spontaneous
  Country: US (occurrence: US)
  Receive Date: 20141106
  Receipt Date: 20150313
  Transmission Date: 20150720
  Serious: Yes (Death, Hospitalization, Other)
  Sender: FDA-Public Use
  Company Number: US-ARIAD-2014US003812

PATIENT

DRUGS (4)
  1. ICLUSIG [Suspect]
     Active Substance: PONATINIB
     Dosage: UNK
  2. ICLUSIG [Suspect]
     Active Substance: PONATINIB
     Indication: CHRONIC MYELOID LEUKAEMIA
     Dosage: 45 MG, QD
     Route: 048
     Dates: start: 20130115
  3. ALLOPURINOL. [Concomitant]
     Active Substance: ALLOPURINOL
     Indication: PRODUCT USED FOR UNKNOWN INDICATION
     Dosage: UNK
     Dates: start: 20140902
  4. SEVELAMER [Concomitant]
     Active Substance: SEVELAMER
     Indication: PRODUCT USED FOR UNKNOWN INDICATION
     Dosage: UNK
     Dates: start: 20140902

REACTIONS (19)
  - Multi-organ failure [Fatal]
  - Diabetes mellitus inadequate control [Fatal]
  - Leukaemia recurrent [Unknown]
  - Rash [Recovered/Resolved]
  - Mucosal inflammation [Unknown]
  - Fungal skin infection [Fatal]
  - Febrile neutropenia [Unknown]
  - Shock [Fatal]
  - Epstein-Barr virus infection [Fatal]
  - Polyuria [Unknown]
  - Vulvovaginal mycotic infection [Fatal]
  - Thrombocytopenia [Unknown]
  - Treatment noncompliance [Unknown]
  - Pneumonia [Unknown]
  - Orthostatic hypotension [Unknown]
  - Blast cell crisis [Recovered/Resolved]
  - Vaginal haemorrhage [Recovered/Resolved]
  - Drug hypersensitivity [Recovered/Resolved]
  - Graft versus host disease [Fatal]

NARRATIVE: CASE EVENT DATE: 201406
